FAERS Safety Report 9949106 (Version 1)
Quarter: 2014Q1

REPORT INFORMATION
  Report Type: Spontaneous
  Country: US (occurrence: US)
  Receive Date: 20140304
  Receipt Date: 20140304
  Transmission Date: 20141002
  Serious: No
  Sender: FDA-Public Use
  Company Number: US-PFIZER INC-2014056992

PATIENT
  Age: 37 Year
  Sex: Female
  Weight: 84.81 kg

DRUGS (3)
  1. ADVIL CONGESTION RELIEF [Suspect]
     Indication: SINUS HEADACHE
     Dosage: UNK, AS NEEDED
     Dates: start: 20140218
  2. ADVIL CONGESTION RELIEF [Suspect]
     Indication: HEADACHE
  3. ZENCHENT FE [Concomitant]
     Indication: CONTRACEPTION
     Dosage: UNK, DAILY

REACTIONS (1)
  - Rash [Not Recovered/Not Resolved]
